FAERS Safety Report 15562398 (Version 2)
Quarter: 2018Q4

REPORT INFORMATION
  Report Type: Spontaneous
  Country: GR (occurrence: GR)
  Receive Date: 20181029
  Receipt Date: 20181107
  Transmission Date: 20190205
  Serious: Yes (Other)
  Sender: FDA-Public Use
  Company Number: GR-PFIZER INC-2017177584

PATIENT
  Age: 50 Year
  Sex: Female

DRUGS (4)
  1. LITHIUM. [Suspect]
     Active Substance: LITHIUM
     Indication: ENDOCRINE OPHTHALMOPATHY
  2. METHYLPREDNISOLONE SODIUM SUCCINATE. [Suspect]
     Active Substance: METHYLPREDNISOLONE SODIUM SUCCINATE
     Indication: ENDOCRINE OPHTHALMOPATHY
     Dosage: CUMULATIVE DOSE OF 6G
     Route: 042
  3. LITHIUM. [Suspect]
     Active Substance: LITHIUM
     Indication: HYPERTHYROIDISM
  4. METHIMAZOLE. [Suspect]
     Active Substance: METHIMAZOLE
     Indication: HYPERTHYROIDISM

REACTIONS (6)
  - Optic neuropathy [Unknown]
  - Disease progression [Unknown]
  - Therapeutic response decreased [Unknown]
  - Drug ineffective [Recovered/Resolved]
  - Colour blindness [Unknown]
  - Visual acuity reduced [Unknown]
